FAERS Safety Report 9918171 (Version 2)
Quarter: 2014Q1

REPORT INFORMATION
  Report Type: Spontaneous
  Country: US (occurrence: US)
  Receive Date: 20140223
  Receipt Date: 20140223
  Transmission Date: 20141002
  Serious: Yes (Death)
  Sender: FDA-Public Use
  Company Number: US-GE HEALTHCARE MEDICAL DIAGNOSTICS-OSCN-PR-0905S-0226

PATIENT
  Age: 20 Year
  Sex: Male

DRUGS (4)
  1. OMNISCAN [Suspect]
     Indication: NUCLEAR MAGNETIC RESONANCE IMAGING BRAIN
     Dates: start: 20061114, end: 20061114
  2. OMNISCAN [Suspect]
     Dates: start: 20061120, end: 20061120
  3. OMNISCAN [Suspect]
     Dates: start: 20061206, end: 20061206
  4. ERYTHROPOETIN [Concomitant]

REACTIONS (1)
  - Nephrogenic systemic fibrosis [Fatal]
